FAERS Safety Report 23740120 (Version 4)
Quarter: 2025Q2

REPORT INFORMATION
  Report Type: Report from Study
  Country: US (occurrence: US)
  Receive Date: 20240414
  Receipt Date: 20250620
  Transmission Date: 20250717
  Serious: Yes (Hospitalization, Other)
  Sender: NOVARTIS
  Company Number: US-002147023-NVSC2024US047363

PATIENT
  Sex: Male

DRUGS (1)
  1. ENTRESTO [Suspect]
     Active Substance: SACUBITRIL\VALSARTAN
     Indication: Product used for unknown indication
     Dosage: 24 MG OF SACUBITRIL AND 26 MG VALSARTAN, BID (TOTAL- 49/51MG)
     Route: 048

REACTIONS (9)
  - Chest discomfort [Unknown]
  - Dyspnoea [Unknown]
  - Chest pain [Unknown]
  - Pneumonia [Unknown]
  - Hip fracture [Unknown]
  - Decreased appetite [Unknown]
  - Fall [Unknown]
  - Rib fracture [Unknown]
  - Incorrect dose administered [Unknown]
